FAERS Safety Report 8501316 (Version 4)
Quarter: 2013Q2

REPORT INFORMATION
  Report Type: Spontaneous
  Country: US (occurrence: US)
  Receive Date: 20120410
  Receipt Date: 20130416
  Transmission Date: 20140414
  Serious: Yes (Hospitalization)
  Sender: FDA-Public Use
  Company Number: US-BAYER-2012-032599

PATIENT
  Age: 25 Year
  Sex: Female

DRUGS (2)
  1. BEYAZ [Suspect]
     Indication: CONTRACEPTION
     Dosage: UNK
     Dates: start: 201011
  2. BEYAZ [Suspect]
     Indication: VAGINAL HAEMORRHAGE
     Dosage: UNK
     Dates: start: 201101

REACTIONS (5)
  - Pulmonary embolism [Recovered/Resolved]
  - Deep vein thrombosis [None]
  - Injury [None]
  - Pain [None]
  - Emotional distress [None]
